FAERS Safety Report 8215662 (Version 12)
Quarter: 2017Q1

REPORT INFORMATION
  Report Type: Spontaneous
  Country: US (occurrence: US)
  Receive Date: 20111031
  Receipt Date: 20170125
  Transmission Date: 20170429
  Serious: Yes (Hospitalization, Other)
  Sender: FDA-Public Use
  Company Number: US-GLAXOSMITHKLINE-A0950896A

PATIENT
  Age: 32 Year
  Sex: Female
  Weight: 100 kg

DRUGS (19)
  1. FLOLAN [Suspect]
     Active Substance: EPOPROSTENOL SODIUM
     Dosage: 40 DF, CO
  2. DOCUSATE [Concomitant]
     Active Substance: DOCUSATE
  3. FLOLAN [Suspect]
     Active Substance: EPOPROSTENOL SODIUM
     Indication: PULMONARY ARTERIAL HYPERTENSION
     Dosage: UNK, CO
  4. SILDENAFIL. [Concomitant]
     Active Substance: SILDENAFIL
  5. LORTAB (ACETAMINOPHEN + HYDROCODONE) [Concomitant]
     Dosage: 5/500 EVERY 4 HOURS
  6. FLOLAN [Suspect]
     Active Substance: EPOPROSTENOL SODIUM
     Dosage: UNK
     Dates: start: 20080502
  7. FLOLAN [Suspect]
     Active Substance: EPOPROSTENOL SODIUM
     Dosage: UNK
     Dates: start: 20080502
  8. LASIX [Concomitant]
     Active Substance: FUROSEMIDE
  9. COUMADIN [Concomitant]
     Active Substance: WARFARIN SODIUM
  10. CITALOPRAM [Concomitant]
     Active Substance: CITALOPRAM HYDROBROMIDE
  11. LETAIRIS [Concomitant]
     Active Substance: AMBRISENTAN
  12. FLOLAN [Suspect]
     Active Substance: EPOPROSTENOL SODIUM
     Indication: PULMONARY ARTERIAL HYPERTENSION
     Dosage: CONCENTRATION 75,000 NG/MLPUMP RATE 77 ML/DAYVIAL STRENGTH 1.5MG40 NG/KG/MIN
     Route: 042
     Dates: start: 20080502
  13. FLOLAN [Suspect]
     Active Substance: EPOPROSTENOL SODIUM
     Dosage: UNK
     Dates: start: 20080502
  14. FLOLAN [Suspect]
     Active Substance: EPOPROSTENOL SODIUM
     Dosage: UNK
     Dates: start: 20080502
  15. PATANASE [Concomitant]
     Active Substance: OLOPATADINE HYDROCHLORIDE
  16. FAMOTIDINE. [Concomitant]
     Active Substance: FAMOTIDINE
  17. FLOLAN [Suspect]
     Active Substance: EPOPROSTENOL SODIUM
     Dosage: 40 NG/KG/MIN CONTINUOUS
     Dates: start: 20080502
  18. REVATIO [Concomitant]
     Active Substance: SILDENAFIL CITRATE
  19. DIGOXIN. [Concomitant]
     Active Substance: DIGOXIN

REACTIONS (10)
  - Flushing [Recovered/Resolved]
  - Sinusitis [Unknown]
  - Nasal congestion [Unknown]
  - Hospitalisation [Recovered/Resolved]
  - Clostridium difficile infection [Not Recovered/Not Resolved]
  - Pneumothorax [Recovered/Resolved]
  - Pain in jaw [Recovered/Resolved]
  - Lung disorder [Recovered/Resolved]
  - Nasopharyngitis [Unknown]
  - Pneumonia [Unknown]

NARRATIVE: CASE EVENT DATE: 20111026
